FAERS Safety Report 18209673 (Version 2)
Quarter: 2020Q3

REPORT INFORMATION
  Report Type: Report from Study
  Country: None (occurrence: NL)
  Receive Date: 20200829
  Receipt Date: 20200919
  Transmission Date: 20201103
  Serious: Yes (Death)
  Sender: FDA-Public Use
  Company Number: NL-ABBVIE-20K-114-3545431-00

PATIENT
  Sex: Male

DRUGS (3)
  1. MORFINE [Concomitant]
     Active Substance: MORPHINE
     Indication: PRODUCT USED FOR UNKNOWN INDICATION
  2. DUODOPA [Suspect]
     Active Substance: CARBIDOPA\LEVODOPA
  3. DUODOPA [Suspect]
     Active Substance: CARBIDOPA\LEVODOPA
     Indication: PARKINSON^S DISEASE
     Dosage: MD 12.0, CD 3.0, ED 3.0
     Route: 050
     Dates: start: 20180806

REACTIONS (1)
  - General physical health deterioration [Fatal]
